FAERS Safety Report 14783164 (Version 1)
Quarter: 2018Q2

REPORT INFORMATION
  Report Type: Spontaneous
  Country: US (occurrence: US)
  Receive Date: 20180420
  Receipt Date: 20180420
  Transmission Date: 20180711
  Serious: No
  Sender: FDA-Public Use
  Company Number: US-BIOGEN-2013BI088937

PATIENT
  Sex: Male

DRUGS (2)
  1. TYSABRI [Suspect]
     Active Substance: NATALIZUMAB
     Indication: MULTIPLE SCLEROSIS
     Dosage: OVER 1 HOUR INFUSION
     Route: 042
     Dates: start: 20130403
  2. TYSABRI [Suspect]
     Active Substance: NATALIZUMAB
     Dosage: OVER 1 HOUR INFUSION
     Route: 042
     Dates: start: 20130409

REACTIONS (6)
  - Tongue pruritus [Unknown]
  - Gait disturbance [Recovered/Resolved]
  - Balance disorder [Unknown]
  - Hypoaesthesia [Recovered/Resolved]
  - Oral mucosal eruption [Recovered/Resolved]
  - Muscle spasms [Recovered/Resolved]

NARRATIVE: CASE EVENT DATE: 2013
